FAERS Safety Report 9954041 (Version 1)
Quarter: 2014Q1

REPORT INFORMATION
  Report Type: Spontaneous
  Country: DE (occurrence: DE)
  Receive Date: 20140304
  Receipt Date: 20140304
  Transmission Date: 20141002
  Serious: Yes (Other)
  Sender: FDA-Public Use
  Company Number: DE-TEVA-464711GER

PATIENT
  Age: 40 Year
  Sex: Female
  Weight: 169 kg

DRUGS (1)
  1. NITROFURANTOINUM [Suspect]
     Indication: CYSTITIS NONINFECTIVE
     Dosage: 2 DOSAGE FORMS DAILY;
     Route: 048
     Dates: start: 20140209, end: 20140210

REACTIONS (4)
  - Interstitial lung disease [Recovering/Resolving]
  - Leukocytosis [Recovering/Resolving]
  - Lymphopenia [Recovering/Resolving]
  - Blood lactate dehydrogenase [Recovering/Resolving]
